FAERS Safety Report 15375961 (Version 2)
Quarter: 2018Q4

REPORT INFORMATION
  Report Type: Spontaneous
  Country: US (occurrence: US)
  Receive Date: 20180912
  Receipt Date: 20181203
  Transmission Date: 20190204
  Serious: Yes (Other)
  Sender: FDA-Public Use
  Company Number: US-GLAXOSMITHKLINE-US2018162320

PATIENT
  Sex: Female

DRUGS (1)
  1. BENLYSTA [Suspect]
     Active Substance: BELIMUMAB
     Indication: SYSTEMIC LUPUS ERYTHEMATOSUS
     Dosage: UNK
     Route: 058
     Dates: start: 2018

REACTIONS (5)
  - Abdominal distension [Unknown]
  - Hypersensitivity [Unknown]
  - Mastitis [Unknown]
  - Product dose omission [Recovered/Resolved]
  - Breast swelling [Unknown]

NARRATIVE: CASE EVENT DATE: 2018
